FAERS Safety Report 5128738-1 (Version None)
Quarter: 2006Q4

REPORT INFORMATION
  Report Type: 
  Country: None (occurrence: None)
  Receive Date: 20061017
  Receipt Date: 20061005
  Transmission Date: 20070319
  Serious: Yes (Hospitalization, Disabling)
  Sender: FDA-Public Use
  Company Number: 2006PK02062

PATIENT
  Age: 83 Year
  Sex: Male
  Weight: 63 kg

DRUGS (15)
  1. SEROQUEL [Suspect]
     Indication: HALLUCINATION, VISUAL
     Route: 048
     Dates: start: 20060810, end: 20060815
  2. SINEMET [Suspect]
     Indication: PARKINSON'S DISEASE
     Route: 048
     Dates: start: 20030301
  3. HALDOL [Suspect]
     Indication: HALLUCINATION, VISUAL
     Route: 048
     Dates: start: 20060809, end: 20060809
  4. LEPONEX [Interacting]
     Indication: HALLUCINATION, VISUAL
     Route: 048
     Dates: start: 20060819, end: 20060913
  5. NEURONTIN [Suspect]
     Indication: RESTLESSNESS
     Route: 048
     Dates: start: 20060814
  6. NEURONTIN [Suspect]
     Indication: AGITATION
     Route: 048
     Dates: start: 20060814
  7. EFFEXOR [Interacting]
     Indication: DEPRESSION
     Route: 048
     Dates: start: 20060822
  8. TOLTERODINE [Concomitant]
     Indication: STRESS URINARY INCONTINENCE
     Route: 048
     Dates: end: 20060901
  9. FOSAMAX [Concomitant]
     Indication: OSTEOPOROSIS
     Route: 048
     Dates: start: 20060301
  10. BIOREX FIG SYRUP [Concomitant]
     Indication: CONSTIPATION
     Dates: start: 20060724
  11. MOVICOL [Concomitant]
     Indication: CONSTIPATION
     Route: 048
     Dates: start: 20060814
  12. MG 5 LONGORAL [Concomitant]
     Indication: MAGNESIUM DEFICIENCY
     Route: 048
     Dates: start: 20060906
  13. CALCIMAGON-D3 [Concomitant]
     Indication: OSTEOPOROSIS
     Dates: start: 20060301
  14. TRUSOPT [Concomitant]
     Indication: OPEN ANGLE GLAUCOMA
     Route: 031
  15. FLORINEF [Concomitant]
     Indication: ORTHOSTATIC HYPOTENSION
     Route: 048
     Dates: start: 20060815

REACTIONS (10)
  - AGITATION [None]
  - DISORIENTATION [None]
  - DRUG INTERACTION [None]
  - FALL [None]
  - MOVEMENT DISORDER [None]
  - MUSCULOSKELETAL STIFFNESS [None]
  - NORMOCHROMIC NORMOCYTIC ANAEMIA [None]
  - OFF LABEL USE [None]
  - SOMNOLENCE [None]
  - STUPOR [None]
